FAERS Safety Report 9463632 (Version 3)
Quarter: 2013Q3

REPORT INFORMATION
  Report Type: Report from Study
  Country: NZ (occurrence: NZ)
  Receive Date: 20130819
  Receipt Date: 20130822
  Transmission Date: 20140515
  Serious: Yes (Hospitalization)
  Sender: FDA-Public Use
  Company Number: PHHY2013NZ026544

PATIENT
  Age: 25 Year
  Sex: Male

DRUGS (7)
  1. CLOZARIL [Suspect]
     Dosage: UNK
     Route: 048
     Dates: start: 20100816, end: 20130314
  2. CLOZARIL [Suspect]
     Dosage: 50 MG
     Dates: start: 20130405
  3. CLOZARIL [Suspect]
     Dosage: 100 MG
     Dates: start: 20130725
  4. METFORMIN [Concomitant]
     Dosage: UNK
  5. INSULIN [Concomitant]
     Dosage: UNK
  6. CITALOPRAM [Concomitant]
     Dosage: UNK
  7. CLONAZEPAM [Concomitant]
     Dosage: UNK

REACTIONS (5)
  - Musculoskeletal chest pain [Unknown]
  - Antipsychotic drug level decreased [Unknown]
  - Chest pain [Unknown]
  - Sinus tachycardia [Unknown]
  - Tachycardia [Unknown]
